FAERS Safety Report 9257154 (Version 4)
Quarter: 2013Q3

REPORT INFORMATION
  Report Type: Spontaneous
  Country: JP (occurrence: None)
  Receive Date: 20130424
  Receipt Date: 20130806
  Transmission Date: 20140515
  Serious: Yes (Death)
  Sender: FDA-Public Use
  Company Number: TCI2013A02269

PATIENT
  Age: 79 Year
  Sex: Male

DRUGS (18)
  1. NESINA [Suspect]
     Indication: TYPE 2 DIABETES MELLITUS
     Route: 048
     Dates: start: 20111018, end: 20120913
  2. OLMETEC [Concomitant]
  3. ATELEC (CILNIDPINE) [Concomitant]
  4. NATRIX (INDAPAMIDE) [Concomitant]
  5. OMEPRAL (OMEPRAZOLE) [Concomitant]
  6. MYSLEE (ZOLPIDEM TARTRATE) [Concomitant]
  7. PRIMPERAN (METOCLOPRAMIDE HYDROCHLORIDE) [Concomitant]
  8. CELECOX (CELECOXIB) [Concomitant]
  9. KETEK (TELITHROMYCIN) [Concomitant]
  10. BUP-4 (PROPIVERINE HYDROCHLORIDE) [Concomitant]
  11. HARNAL D (TAMSULOSIN HYDROCHLORIDE) [Concomitant]
  12. LOPEMIN (LOPERAMIDE HYDROCHLORIDE) [Concomitant]
  13. URIEF (SILODOSIN) [Concomitant]
  14. THEODUR (THEOPHYLLINE) [Concomitant]
  15. HUSTAZOL [Concomitant]
  16. MUCODYNE (CARBOCISTEINE) [Concomitant]
  17. SENNARIDE (SENNOSIDE A+B) [Concomitant]
  18. LOXOPROFEN NA [Suspect]
     Indication: BACK PAIN
     Dosage: 120 MG(120 MG, 1 D)
     Route: 048
     Dates: start: 20120111, end: 20120118

REACTIONS (6)
  - Bile duct cancer [None]
  - Decreased appetite [None]
  - Blood glucose decreased [None]
  - Gastrooesophageal reflux disease [None]
  - Haematuria [None]
  - Bile duct cancer recurrent [None]
